FAERS Safety Report 9292545 (Version 1)
Quarter: 2013Q2

REPORT INFORMATION
  Report Type: Spontaneous
  Country: CA (occurrence: None)
  Receive Date: 20130513
  Receipt Date: 20130513
  Transmission Date: 20140414
  Serious: Yes (Hospitalization)
  Sender: FDA-Public Use
  Company Number: B0890619A

PATIENT
  Age: 63 Year
  Sex: Female

DRUGS (1)
  1. LAMOTRIGINE [Suspect]
     Indication: BIPOLAR DISORDER

REACTIONS (12)
  - Meningitis aseptic [None]
  - Rash macular [None]
  - Rash erythematous [None]
  - Pyrexia [None]
  - White blood cell count decreased [None]
  - Aspartate aminotransferase increased [None]
  - Alanine aminotransferase increased [None]
  - Blood sodium decreased [None]
  - Drug reaction with eosinophilia and systemic symptoms [None]
  - Multi-organ disorder [None]
  - Headache [None]
  - Neck pain [None]
